FAERS Safety Report 21612473 (Version 1)
Quarter: 2022Q4

REPORT INFORMATION
  Report Type: Spontaneous
  Country: US (occurrence: US)
  Receive Date: 20221118
  Receipt Date: 20221118
  Transmission Date: 20230113
  Serious: Yes (Other)
  Sender: FDA-Public Use
  Company Number: US-JNJFOC-20221124494

PATIENT
  Sex: Female

DRUGS (3)
  1. TYLENOL [Suspect]
     Active Substance: ACETAMINOPHEN
     Indication: Back pain
     Dosage: MOTHER BEGAN USING APAP IN OR AROUND 2008-2009 WHEN SHE WAS PREGNANT
     Route: 064
  2. TYLENOL [Suspect]
     Active Substance: ACETAMINOPHEN
     Indication: Arthritis
  3. TYLENOL [Suspect]
     Active Substance: ACETAMINOPHEN
     Indication: Headache

REACTIONS (3)
  - Autism spectrum disorder [Unknown]
  - Foetal exposure during pregnancy [Unknown]
  - Attention deficit hyperactivity disorder [Unknown]
